FAERS Safety Report 8548633-5 (Version None)
Quarter: 2012Q3

REPORT INFORMATION
  Report Type: 
  Country: None (occurrence: None)
  Receive Date: 20120717
  Receipt Date: 20120702
  Transmission Date: 20120928
  Serious: Yes (Other)
  Sender: FDA-Public Use
  Company Number: 2012MA008386

PATIENT
  Age: 55 Year
  Sex: Male

DRUGS (3)
  1. SIMVASTATIN [Suspect]
     Indication: BLOOD CHOLESTEROL INCREASED
  2. AMLODIPINE [Suspect]
     Indication: HYPERTENSION
     Dosage: 10 MG
  3. RAMIPRIL [Suspect]
     Indication: HYPERTENSION
     Dosage: 10 MG

REACTIONS (11)
  - BLOOD PRESSURE INCREASED [None]
  - MYALGIA [None]
  - GAIT DISTURBANCE [None]
  - FEELING ABNORMAL [None]
  - DEPRESSED MOOD [None]
  - CONFUSIONAL STATE [None]
  - DRUG INTERACTION [None]
  - DYSSTASIA [None]
  - THROAT IRRITATION [None]
  - FATIGUE [None]
  - DYSPNOEA [None]
